FAERS Safety Report 7768976-2 (Version None)
Quarter: 2011Q3

REPORT INFORMATION
  Report Type: 
  Country: None (occurrence: None)
  Receive Date: 20110922
  Receipt Date: 20110317
  Transmission Date: 20111222
  Serious: No
  Sender: FDA-Public Use
  Company Number: US-ASTRAZENECA-2010SE51481

PATIENT
  Sex: Female

DRUGS (8)
  1. SEROQUEL XR [Suspect]
     Indication: DEPRESSION
     Route: 048
  2. LEXAPRO [Concomitant]
  3. SEROQUEL XR [Suspect]
     Route: 048
  4. TRAZODONE HCL [Concomitant]
  5. SEROQUEL XR [Suspect]
     Route: 048
  6. DIABETES MEDICATION [Concomitant]
  7. ABILIFY [Concomitant]
  8. CRESTOR [Concomitant]

REACTIONS (6)
  - FEELING ABNORMAL [None]
  - INAPPROPRIATE SCHEDULE OF DRUG ADMINISTRATION [None]
  - DEPRESSION [None]
  - DRUG DOSE OMISSION [None]
  - IMPAIRED WORK ABILITY [None]
  - INSOMNIA [None]
